FAERS Safety Report 7866085-5 (Version None)
Quarter: 2011Q4

REPORT INFORMATION
  Report Type: 
  Country: None (occurrence: None)
  Receive Date: 20111028
  Receipt Date: 20110420
  Transmission Date: 20120403
  Serious: No
  Sender: FDA-Public Use
  Company Number: US-GLAXOSMITHKLINE-A0923776A

PATIENT
  Age: 86 Year
  Sex: Female

DRUGS (5)
  1. LIPITOR [Concomitant]
  2. DILTIAZEM HCL [Concomitant]
  3. BONIVA [Concomitant]
  4. ADVAIR DISKUS 100/50 [Suspect]
     Indication: CHRONIC OBSTRUCTIVE PULMONARY DISEASE
     Dosage: 1PUFF PER DAY
     Route: 055
     Dates: start: 20110222
  5. ASPIRIN [Concomitant]

REACTIONS (2)
  - MYALGIA [None]
  - COUGH [None]
